FAERS Safety Report 17940064 (Version 1)
Quarter: 2020Q2

REPORT INFORMATION
  Report Type: Spontaneous
  Country: DE (occurrence: DE)
  Receive Date: 20200625
  Receipt Date: 20200625
  Transmission Date: 20200714
  Serious: Yes (Hospitalization, Other)
  Sender: FDA-Public Use
  Company Number: DE-SA-2020SA156488

PATIENT

DRUGS (7)
  1. XIPAMID [Suspect]
     Active Substance: XIPAMIDE
     Dosage: 20 MG, QD (20 MG, 1-0-0-0)
     Route: 065
  2. ACETYLSALICYLIC ACID [Suspect]
     Active Substance: ASPIRIN
     Dosage: 100 MG, QD (00 MG, 1-0-0-0)
     Route: 065
  3. IRON (SALT NOT SPECIFIED) [Suspect]
     Active Substance: IRON
     Dosage: 100 MG, QD (100 MG, 1-0-0-0)
     Route: 065
  4. METAMIZOL [Concomitant]
     Active Substance: METAMIZOLE SODIUM
     Dosage: 500 MG, QID (500 MG, 1-1-1-1, TABLET)
     Route: 065
  5. PANTOPRAZOL [PANTOPRAZOLE] [Concomitant]
     Active Substance: PANTOPRAZOLE
     Dosage: 40 MG, QD (40 MG, 1-0-0-0)
     Route: 065
  6. CLOPIDOGREL BISULFATE. [Suspect]
     Active Substance: CLOPIDOGREL BISULFATE
     Dosage: 75 MG, QD (75 MG, 1-0-0-0)
     Route: 065
  7. FUROSEMIDE. [Suspect]
     Active Substance: FUROSEMIDE
     Dosage: 40 MG, BID (40 MG, 1-1-0-0)
     Route: 065

REACTIONS (5)
  - Pain in extremity [Unknown]
  - General physical health deterioration [Unknown]
  - Dyspnoea exertional [Unknown]
  - Melaena [Unknown]
  - Mineral supplementation [Unknown]
